FAERS Safety Report 21245185 (Version 2)
Quarter: 2022Q3

REPORT INFORMATION
  Report Type: Spontaneous
  Country: IE (occurrence: IE)
  Receive Date: 20220823
  Receipt Date: 20220901
  Transmission Date: 20221026
  Serious: Yes (Other)
  Sender: FDA-Public Use
  Company Number: IE-BEH-2022148739

PATIENT
  Age: 25 Year
  Sex: Female

DRUGS (4)
  1. RHOPHYLAC [Suspect]
     Active Substance: HUMAN RHO(D) IMMUNE GLOBULIN
     Indication: Rhesus antibodies
     Dosage: 1500 INTERNATIONAL UNIT
     Route: 065
     Dates: start: 20140730
  2. RHOPHYLAC [Suspect]
     Active Substance: HUMAN RHO(D) IMMUNE GLOBULIN
     Indication: Rhesus antibodies
     Dosage: 1500 INTERNATIONAL UNIT
     Route: 065
     Dates: start: 20140730
  3. RHOPHYLAC [Suspect]
     Active Substance: HUMAN RHO(D) IMMUNE GLOBULIN
     Dosage: 1500 MICROGRAM
     Route: 065
     Dates: start: 20140730
  4. RHOPHYLAC [Suspect]
     Active Substance: HUMAN RHO(D) IMMUNE GLOBULIN
     Dosage: 1500 MICROGRAM
     Route: 065
     Dates: start: 20140730

REACTIONS (3)
  - Hepatitis C [Recovered/Resolved]
  - Suspected transmission of an infectious agent via product [Recovered/Resolved]
  - Viraemia [Recovered/Resolved]

NARRATIVE: CASE EVENT DATE: 20141101
